FAERS Safety Report 10684018 (Version 1)
Quarter: 2014Q4

REPORT INFORMATION
  Report Type: Spontaneous
  Country: JP (occurrence: JP)
  Receive Date: 20141230
  Receipt Date: 20141230
  Transmission Date: 20150529
  Serious: Yes (Death, Other)
  Sender: FDA-Public Use
  Company Number: JP-009507513-1412JPN012535

PATIENT
  Age: 81 Year
  Sex: Male
  Weight: 56 kg

DRUGS (6)
  1. HYDREA [Concomitant]
     Active Substance: HYDROXYUREA
     Indication: CHRONIC MYELOMONOCYTIC LEUKAEMIA
     Dosage: 500 MG, BID
     Route: 048
     Dates: start: 20140728
  2. CANCIDAS [Suspect]
     Active Substance: CASPOFUNGIN ACETATE
     Indication: FEBRILE NEUTROPENIA
     Dosage: 50 MG, QD
     Route: 041
     Dates: start: 20140807, end: 20140826
  3. CANCIDAS [Suspect]
     Active Substance: CASPOFUNGIN ACETATE
     Indication: FEBRILE NEUTROPENIA
     Dosage: 70 MG, QD
     Route: 041
     Dates: start: 20140806, end: 20140806
  4. TRAZENTA [Concomitant]
     Active Substance: LINAGLIPTIN
     Indication: DIABETES MELLITUS
     Dosage: 5 MG, QD
     Route: 048
     Dates: start: 20140708
  5. BASEN [Concomitant]
     Active Substance: VOGLIBOSE
     Indication: DIABETES MELLITUS
     Dosage: 0.3 MG, TID
     Route: 048
     Dates: start: 20140708
  6. ACTOS [Concomitant]
     Active Substance: PIOGLITAZONE HYDROCHLORIDE
     Indication: DIABETES MELLITUS
     Dosage: 15 MG, QD
     Dates: start: 20120901

REACTIONS (1)
  - Cerebral haemorrhage [Fatal]

NARRATIVE: CASE EVENT DATE: 20140829
